FAERS Safety Report 25439265 (Version 1)
Quarter: 2025Q2

REPORT INFORMATION
  Report Type: Spontaneous
  Country: US (occurrence: None)
  Receive Date: 20250612
  Receipt Date: 20250612
  Transmission Date: 20250717
  Serious: Yes (Other)
  Sender: FDA-CTU
  Company Number: None

PATIENT
  Age: 57 Year
  Sex: Female
  Weight: 62.2 kg

DRUGS (5)
  1. ELAHERE [Suspect]
     Active Substance: MIRVETUXIMAB SORAVTANSINE-GYNX
     Indication: Ovarian epithelial cancer
     Route: 042
  2. mirvetuximab soravtansine-gynx (ELAHERE) 382.8 mg in D5W 326.56 mL [Concomitant]
     Dates: start: 20250402, end: 20250402
  3. mirvetuximab soravtansine-gynx (ELAHERE) 382.8 mg in D5W 326.56 mL [Concomitant]
     Dates: end: 20250423
  4. mirvetuximab soravtansine-gynx (ELAHERE) 319 mg in D5W 163.8 mL [Concomitant]
     Dates: end: 20250514
  5. mirvetuximab soravtansine-gynx (ELAHERE) 319 mg in D5W 163.8 mL [Concomitant]
     Dates: end: 20250604

REACTIONS (4)
  - Nausea [None]
  - Infusion related reaction [None]
  - Diarrhoea [None]
  - Neuropathy peripheral [None]

NARRATIVE: CASE EVENT DATE: 20250402
